FAERS Safety Report 15248186 (Version 1)
Quarter: 2018Q3

REPORT INFORMATION
  Report Type: Spontaneous
  Country: MY (occurrence: MY)
  Receive Date: 20180807
  Receipt Date: 20180807
  Transmission Date: 20181010
  Serious: Yes (Other)
  Sender: FDA-Public Use
  Company Number: MY-MYLANLABS-2018M1060118

PATIENT
  Age: 54 Year
  Sex: Male

DRUGS (15)
  1. OLANZAPINE. [Suspect]
     Active Substance: OLANZAPINE
     Indication: NEUROSYPHILIS
     Dosage: 15 MG, QD
     Route: 065
     Dates: start: 2017
  2. HALOPERIDOL. [Suspect]
     Active Substance: HALOPERIDOL
     Indication: NEUROSYPHILIS
     Dosage: 15 MG, QD
     Route: 065
     Dates: start: 2017
  3. PALIPERIDONE. [Suspect]
     Active Substance: PALIPERIDONE
     Indication: SCHIZOAFFECTIVE DISORDER
  4. QUETIAPINE. [Suspect]
     Active Substance: QUETIAPINE
     Indication: NEUROSYPHILIS
     Dosage: INITIAL DOSE NOT STATED; HIGHEST DOSE RECEIVED WAS 800 MG/DAY
     Route: 065
     Dates: start: 2017
  5. CLOZAPINE. [Suspect]
     Active Substance: CLOZAPINE
     Indication: NEUROSYPHILIS
     Dosage: 75 MG, BID, HE WAS UNABLE TO TOLERATE DOSE HIGHER THAN 150MG DAILY
     Route: 065
     Dates: start: 2017
  6. SULPIRIDE [Suspect]
     Active Substance: SULPIRIDE
     Indication: NEUROSYPHILIS
     Dosage: INITIAL DOSE NOT STATED; HIGHEST DOSE WAS 1000MG/DAY
     Route: 065
     Dates: start: 2017
  7. OLANZAPINE. [Suspect]
     Active Substance: OLANZAPINE
     Indication: SCHIZOAFFECTIVE DISORDER
  8. HALOPERIDOL. [Suspect]
     Active Substance: HALOPERIDOL
     Indication: SCHIZOAFFECTIVE DISORDER
  9. SULPIRIDE [Suspect]
     Active Substance: SULPIRIDE
     Indication: SCHIZOAFFECTIVE DISORDER
  10. FLUOXETINE [Concomitant]
     Active Substance: FLUOXETINE HYDROCHLORIDE
     Indication: SCHIZOAFFECTIVE DISORDER
  11. FLUOXETINE [Concomitant]
     Active Substance: FLUOXETINE HYDROCHLORIDE
     Indication: NEUROSYPHILIS
     Dosage: 40 MG, QD
     Route: 065
     Dates: start: 2017
  12. QUETIAPINE. [Suspect]
     Active Substance: QUETIAPINE
     Indication: SCHIZOAFFECTIVE DISORDER
  13. ETOMIDATE. [Suspect]
     Active Substance: ETOMIDATE
     Indication: INDUCTION OF ANAESTHESIA
     Dosage: UNK
     Route: 065
     Dates: start: 2017
  14. PALIPERIDONE. [Suspect]
     Active Substance: PALIPERIDONE
     Indication: NEUROSYPHILIS
     Dosage: INITIAL DOSE NOT STATED; HIGHEST DOSE ADMINISTERED WAS 150MG MONTHLY
     Route: 065
     Dates: start: 2017
  15. CLOZAPINE. [Suspect]
     Active Substance: CLOZAPINE
     Indication: SCHIZOAFFECTIVE DISORDER

REACTIONS (6)
  - Neuroleptic malignant syndrome [Unknown]
  - Tremor [Unknown]
  - Sedation complication [Unknown]
  - Seizure [Unknown]
  - Drug ineffective [Unknown]
  - Constipation [Unknown]

NARRATIVE: CASE EVENT DATE: 2017
